FAERS Safety Report 22610171 (Version 1)
Quarter: 2023Q2

REPORT INFORMATION
  Report Type: Spontaneous
  Country: US (occurrence: None)
  Receive Date: 20230615
  Receipt Date: 20230615
  Transmission Date: 20230721
  Serious: Yes (unspecified)
  Sender: FDA-Public Use
  Company Number: None

PATIENT
  Age: 54 Year
  Sex: Female
  Weight: 64.35 kg

DRUGS (1)
  1. SEMAGLUTIDE [Suspect]
     Active Substance: SEMAGLUTIDE
     Indication: Weight decreased
     Dosage: OTHER QUANTITY : 1 INJECTION(S);?OTHER FREQUENCY : ONCE A WEEK;?OTHER ROUTE : SUBCUTANEOUSLY;?
     Route: 050
     Dates: start: 20230404, end: 20230511

REACTIONS (3)
  - Injection site necrosis [None]
  - Wrong technique in device usage process [None]
  - Incorrect route of product administration [None]

NARRATIVE: CASE EVENT DATE: 20230501
